FAERS Safety Report 20012831 (Version 1)
Quarter: 2021Q4

REPORT INFORMATION
  Report Type: Spontaneous
  Country: NL (occurrence: NL)
  Receive Date: 20211029
  Receipt Date: 20211029
  Transmission Date: 20220303
  Serious: Yes (Hospitalization)
  Sender: FDA-Public Use
  Company Number: NL-PERRIGO-21NL030130

PATIENT

DRUGS (1)
  1. NIQUITIN [Suspect]
     Active Substance: NICOTINE
     Indication: Product used for unknown indication
     Dosage: 1 PATCH ONLY USED
     Route: 062

REACTIONS (3)
  - Hypersensitivity [Unknown]
  - Erythema [Unknown]
  - Skin irritation [Unknown]
